FAERS Safety Report 6482596-1 (Version None)
Quarter: 2009Q4

REPORT INFORMATION
  Report Type: 
  Country: None (occurrence: None)
  Receive Date: 20091209
  Receipt Date: 20091127
  Transmission Date: 20100525
  Serious: Yes (Hospitalization)
  Sender: FDA-Public Use
  Company Number: FR-RANBAXY-2009RR-29524

PATIENT
  Age: 58 Year
  Sex: Female

DRUGS (9)
  1. LEVOFLOXACIN [Suspect]
     Dosage: 500 MG, QD
     Route: 048
  2. MIRTAZAPINE [Suspect]
     Indication: DECREASED APPETITE
     Dosage: 7.5 MG, QD
     Route: 048
  3. MIRTAZAPINE [Suspect]
     Indication: INSOMNIA
     Dosage: 15 MG, QD
     Route: 048
  4. METOCLOPRAMIDE [Suspect]
     Dosage: 10 MG, QD
     Route: 048
  5. CEFEPIME [Concomitant]
     Dosage: 1 G, BID
     Route: 042
  6. PANTOPRAZOLE [Concomitant]
  7. PARACETAMOL [Concomitant]
  8. FOSPHENYTOIN [Concomitant]
  9. AZTREONAM [Concomitant]

REACTIONS (2)
  - CONVULSION [None]
  - DRUG INTERACTION [None]
